FAERS Safety Report 8504524-7 (Version None)
Quarter: 2012Q3

REPORT INFORMATION
  Report Type: 
  Country: None (occurrence: None)
  Receive Date: 20120711
  Receipt Date: 20120626
  Transmission Date: 20120928
  Serious: Yes (Life-Threatening, Other)
  Sender: FDA-Public Use
  Company Number: JP-ROCHE-1082831

PATIENT
  Sex: Female

DRUGS (58)
  1. ACTEMRA [Suspect]
     Route: 041
     Dates: start: 20101207
  2. LEVOTHYROXINE SODIUM [Concomitant]
     Route: 048
     Dates: start: 20101207
  3. PREDNISOLONE [Concomitant]
     Route: 048
     Dates: start: 20101228, end: 20110217
  4. PREDNISOLONE [Concomitant]
     Route: 048
     Dates: start: 20111102, end: 20111220
  5. PREDNISOLONE [Concomitant]
     Route: 048
     Dates: start: 20111221, end: 20120117
  6. LASIX [Concomitant]
     Indication: PROPHYLAXIS
     Route: 048
     Dates: end: 20100916
  7. SULFAMETHOXAZOLE AND TRIMETHOPRIM [Concomitant]
     Indication: PROPHYLAXIS
     Route: 048
     Dates: end: 20100312
  8. WARFARIN SODIUM [Concomitant]
     Route: 048
     Dates: start: 20101202, end: 20110217
  9. PREDNISOLONE [Concomitant]
     Route: 048
     Dates: start: 20110218, end: 20110317
  10. ASPIRIN [Concomitant]
     Route: 048
  11. WARFARIN SODIUM [Concomitant]
     Route: 048
     Dates: start: 20110814
  12. NEORAL [Concomitant]
     Indication: CASTLEMAN'S DISEASE
     Route: 048
     Dates: end: 20090318
  13. ACTEMRA [Suspect]
     Route: 041
     Dates: start: 20100514, end: 20100618
  14. ACTEMRA [Suspect]
     Route: 041
     Dates: start: 20100917, end: 20101126
  15. PREDNISOLONE [Concomitant]
     Indication: CASTLEMAN'S DISEASE
     Route: 048
     Dates: end: 20090611
  16. PREDNISOLONE [Concomitant]
     Route: 048
     Dates: start: 20110426, end: 20110526
  17. LASIX [Concomitant]
     Route: 048
     Dates: start: 20110218, end: 20110817
  18. MUCOSTA [Concomitant]
     Indication: PROPHYLAXIS
     Route: 048
     Dates: end: 20091120
  19. WARFARIN SODIUM [Concomitant]
     Route: 048
     Dates: end: 20101201
  20. KADIAN [Concomitant]
     Route: 048
     Dates: end: 20100212
  21. ALFAROL [Concomitant]
     Route: 048
     Dates: start: 20101202, end: 20101206
  22. PREDNISOLONE [Concomitant]
     Route: 048
     Dates: start: 20090807, end: 20090917
  23. PREDNISOLONE [Concomitant]
     Route: 048
     Dates: start: 20101202, end: 20101216
  24. PREDNISOLONE [Concomitant]
     Route: 048
     Dates: start: 20110624, end: 20110808
  25. WARFARIN SODIUM [Concomitant]
     Route: 048
     Dates: start: 20110218, end: 20110427
  26. NEORAL [Concomitant]
     Route: 048
     Dates: start: 20090319, end: 20090402
  27. ALFAROL [Concomitant]
     Route: 048
     Dates: start: 20101207, end: 20101210
  28. ACTEMRA [Suspect]
     Indication: CASTLEMAN'S DISEASE
     Route: 041
     Dates: start: 20090202, end: 20091023
  29. PREDNISOLONE [Concomitant]
     Route: 048
     Dates: start: 20090710, end: 20090806
  30. PREDNISOLONE [Concomitant]
     Route: 048
     Dates: start: 20100917, end: 20101014
  31. PREDNISOLONE [Concomitant]
     Route: 048
     Dates: start: 20101112, end: 20101201
  32. PREDNISOLONE [Concomitant]
     Route: 048
     Dates: start: 20101217, end: 20101227
  33. PREDNISOLONE [Concomitant]
     Route: 048
     Dates: start: 20110401, end: 20110425
  34. LASIX [Concomitant]
     Route: 048
     Dates: start: 20110114, end: 20110217
  35. LOXONIN [Concomitant]
     Indication: PROPHYLAXIS
     Route: 048
     Dates: start: 20100917
  36. PREDNISOLONE [Concomitant]
     Route: 048
     Dates: start: 20101015, end: 20101111
  37. PREDNISOLONE [Concomitant]
     Route: 048
     Dates: start: 20110318, end: 20110331
  38. PREDNISOLONE [Concomitant]
     Route: 048
     Dates: start: 20110809, end: 20111004
  39. PREDNISOLONE [Concomitant]
     Route: 048
     Dates: start: 20111005, end: 20111101
  40. PREDNISOLONE [Concomitant]
     Route: 048
     Dates: start: 20120118
  41. OMEPRAZOLE [Concomitant]
     Indication: PROPHYLAXIS
     Route: 048
     Dates: end: 20100115
  42. LASIX [Concomitant]
     Route: 048
     Dates: start: 20100917, end: 20110113
  43. LASIX [Concomitant]
     Route: 048
     Dates: start: 20110818
  44. ETODOLAC [Concomitant]
     Route: 048
     Dates: end: 20091120
  45. SULFAMETHOXAZOLE AND TRIMETHOPRIM [Concomitant]
     Route: 048
     Dates: start: 20100917
  46. FLUCONAZOLE [Concomitant]
     Indication: PROPHYLAXIS
     Route: 048
     Dates: end: 20100115
  47. ACTEMRA [Suspect]
     Route: 041
     Dates: start: 20091120, end: 20100409
  48. ACTEMRA [Suspect]
     Route: 041
     Dates: start: 20100716, end: 20100820
  49. PREDNISOLONE [Concomitant]
     Route: 048
     Dates: start: 20090612, end: 20090709
  50. PREDNISOLONE [Concomitant]
     Route: 048
     Dates: start: 20090918, end: 20100916
  51. PREDNISOLONE [Concomitant]
     Route: 048
     Dates: start: 20110527, end: 20110623
  52. ALENDRONATE SODIUM [Concomitant]
     Indication: PROPHYLAXIS
     Route: 048
  53. WARFARIN SODIUM [Concomitant]
     Route: 048
     Dates: start: 20110428, end: 20110813
  54. NEORAL [Concomitant]
     Route: 048
     Dates: start: 20090403, end: 20090416
  55. LEVOTHYROXINE SODIUM [Concomitant]
     Indication: HYPOTHYROIDISM
     Dosage: 50I?G AND 100I?G ARE ALTERNATE.
     Route: 048
     Dates: end: 20101201
  56. LEVOTHYROXINE SODIUM [Concomitant]
     Route: 048
     Dates: start: 20101202, end: 20101206
  57. ACETAMINOPHEN [Concomitant]
     Indication: PROPHYLAXIS
     Route: 048
     Dates: start: 20101211
  58. ALFAROL [Concomitant]
     Route: 048
     Dates: start: 20101211, end: 20110106

REACTIONS (6)
  - OEDEMA PERIPHERAL [None]
  - THROMBOSIS [None]
  - EPIGASTRIC DISCOMFORT [None]
  - INFERIOR VENA CAVAL OCCLUSION [None]
  - DEHYDRATION [None]
  - SUPERIOR VENA CAVA SYNDROME [None]
